FAERS Safety Report 8289737-4 (Version None)
Quarter: 2012Q2

REPORT INFORMATION
  Report Type: 
  Country: None (occurrence: None)
  Receive Date: 20120417
  Receipt Date: 20120416
  Transmission Date: 20120825
  Serious: Yes (Hospitalization)
  Sender: FDA-Public Use
  Company Number: US-PFIZER INC-2012047571

PATIENT
  Sex: Male
  Weight: 97.506 kg

DRUGS (4)
  1. LYRICA [Suspect]
     Dosage: 300 MG, 2X/DAY
     Route: 048
     Dates: end: 20120401
  2. PERCOCET [Concomitant]
     Indication: BREAKTHROUGH PAIN
     Dosage: 10/325 MG, UP TO SIX TIMES A DAY
  3. LYRICA [Suspect]
     Indication: SPINAL CORD DISORDER
     Dosage: 450 MG, 2X/DAY
     Route: 048
  4. MS CONTIN [Concomitant]
     Indication: BACK PAIN
     Dosage: 60 MG, 2X/DAY

REACTIONS (7)
  - CHEST PAIN [None]
  - CRYING [None]
  - PAIN [None]
  - ANGER [None]
  - MOOD SWINGS [None]
  - RESTLESSNESS [None]
  - AGITATION [None]
